FAERS Safety Report 5262112-2 (Version None)
Quarter: 2007Q1

REPORT INFORMATION
  Report Type: 
  Country: None (occurrence: None)
  Receive Date: 20070311
  Receipt Date: 20070228
  Transmission Date: 20070707
  Serious: Yes (Other)
  Sender: FDA-Public Use
  Company Number: 2006UW21467

PATIENT
  Age: 510 Month
  Sex: Male
  Weight: 72.7 kg

DRUGS (4)
  1. SEROQUEL [Suspect]
     Indication: ANXIETY
     Dosage: 25MG TO 200MG
     Route: 048
     Dates: start: 20050101, end: 20060301
  2. SEROQUEL [Suspect]
     Indication: BIPOLAR I DISORDER
     Dosage: 25MG TO 200MG
     Route: 048
     Dates: start: 20050101, end: 20060301
  3. SEROQUEL [Suspect]
     Dosage: 25MG TO 200MG
     Route: 048
     Dates: start: 20050101, end: 20060301
  4. PSYCHIATRIC MEDICATION [Concomitant]

REACTIONS (2)
  - ALCOHOL DETOXIFICATION [None]
  - DIABETES MELLITUS [None]
